FAERS Safety Report 13884131 (Version 2)
Quarter: 2017Q3

REPORT INFORMATION
  Report Type: Spontaneous
  Country: IN (occurrence: IN)
  Receive Date: 20170821
  Receipt Date: 20170918
  Transmission Date: 20171127
  Serious: Yes (Death, Other)
  Sender: FDA-Public Use
  Company Number: IN-CONCORDIA PHARMACEUTICALS INC.-E2B_00008328

PATIENT
  Age: 59 Year
  Sex: Female

DRUGS (2)
  1. PREDNISOLONE. [Suspect]
     Active Substance: PREDNISOLONE
  2. AZORAN (AZATHIOPRINE) [Suspect]
     Active Substance: AZATHIOPRINE

REACTIONS (4)
  - Strongyloidiasis [Not Recovered/Not Resolved]
  - Sepsis [Fatal]
  - Ileus paralytic [Not Recovered/Not Resolved]
  - Cardiac arrest [Not Recovered/Not Resolved]
